FAERS Safety Report 13537497 (Version 1)
Quarter: 2017Q2

REPORT INFORMATION
  Report Type: Spontaneous
  Country: US (occurrence: US)
  Receive Date: 20170511
  Receipt Date: 20170511
  Transmission Date: 20170830
  Serious: Yes (Hospitalization)
  Sender: FDA-Public Use
  Company Number: US-TEVA-767474USA

PATIENT
  Age: 73 Year
  Sex: Female
  Weight: 65.83 kg

DRUGS (1)
  1. PROVIGIL [Suspect]
     Active Substance: MODAFINIL
     Indication: NARCOLEPSY
     Route: 065
     Dates: start: 2010

REACTIONS (4)
  - Asthenia [Unknown]
  - Fatigue [Not Recovered/Not Resolved]
  - Dyspnoea [Unknown]
  - Hypertension [Unknown]

NARRATIVE: CASE EVENT DATE: 201704
